FAERS Safety Report 11151670 (Version 2)
Quarter: 2015Q2

REPORT INFORMATION
  Report Type: Spontaneous
  Country: GB (occurrence: None)
  Receive Date: 20150528
  Receipt Date: 20150616
  Transmission Date: 20150821
  Serious: Yes (Life-Threatening, Hospitalization, Other)
  Sender: FDA-Public Use
  Company Number: FK201502380

PATIENT
  Age: 38 Year
  Sex: Female
  Weight: 60 kg

DRUGS (5)
  1. ROCURONIUM (MANUFACTURER UNKNOWN) (ROCURONIUM) (ROCURONIUM) [Suspect]
     Active Substance: ROCURONIUM BROMIDE
     Indication: GENERAL ANAESTHESIA
     Route: 042
     Dates: start: 20150506
  2. PROPOFOL. [Concomitant]
     Active Substance: PROPOFOL
  3. ALFENTANIL (ALFENTANIL) [Concomitant]
  4. MIDAZOLAM [Concomitant]
     Active Substance: MIDAZOLAM\MIDAZOLAM HYDROCHLORIDE
  5. ROCURONIUM (MANUFACTURER UNKNOWN) (ROCURONIUM) (ROCURONIUM) [Suspect]
     Active Substance: ROCURONIUM BROMIDE
     Indication: ECTOPIC PREGNANCY
     Route: 042
     Dates: start: 20150506

REACTIONS (1)
  - Anaphylactic reaction [None]

NARRATIVE: CASE EVENT DATE: 20150506
